FAERS Safety Report 9570445 (Version 1)
Quarter: 2013Q3

REPORT INFORMATION
  Report Type: Spontaneous
  Country: US (occurrence: US)
  Receive Date: 20130930
  Receipt Date: 20130930
  Transmission Date: 20140515
  Serious: Yes (Other)
  Sender: FDA-Public Use
  Company Number: US-AMGEN-USASP2013063343

PATIENT
  Sex: Female

DRUGS (1)
  1. ENBREL [Suspect]
     Indication: PSORIATIC ARTHROPATHY
     Dosage: UNK
     Route: 065

REACTIONS (5)
  - Cardiac failure congestive [Not Recovered/Not Resolved]
  - Skin plaque [Not Recovered/Not Resolved]
  - Immune system disorder [Unknown]
  - Bronchial disorder [Unknown]
  - Deformity [Not Recovered/Not Resolved]
